FAERS Safety Report 14873928 (Version 1)
Quarter: 2018Q2

REPORT INFORMATION
  Report Type: Spontaneous
  Country: US (occurrence: US)
  Receive Date: 20180424
  Receipt Date: 20180424
  Transmission Date: 20180711
  Serious: No
  Sender: FDA-Public Use
  Company Number: None

PATIENT
  Sex: Male
  Weight: 77.11 kg

DRUGS (1)
  1. TALTZ [Suspect]
     Active Substance: IXEKIZUMAB
     Indication: PSORIASIS
     Dosage: 80MG Q2WKS SQ
     Route: 058
     Dates: start: 201803

REACTIONS (1)
  - Hand fracture [None]
